FAERS Safety Report 18981959 (Version 1)
Quarter: 2021Q1

REPORT INFORMATION
  Report Type: Spontaneous
  Country: DE (occurrence: DE)
  Receive Date: 20210308
  Receipt Date: 20210308
  Transmission Date: 20210420
  Serious: Yes (Hospitalization, Other)
  Sender: FDA-Public Use
  Company Number: DE-SA-2021SA064355

PATIENT
  Age: 14 Year
  Sex: Male
  Weight: 71 kg

DRUGS (2)
  1. LANTUS [Suspect]
     Active Substance: INSULIN GLARGINE
     Indication: TYPE 1 DIABETES MELLITUS
     Dosage: AS NECESSARY
     Route: 058
     Dates: start: 201203
  2. NOVORAPID [Suspect]
     Active Substance: INSULIN ASPART
     Indication: TYPE 1 DIABETES MELLITUS
     Dosage: AS NECESSARY
     Route: 058
     Dates: start: 201410

REACTIONS (5)
  - Ketoacidosis [Recovered/Resolved]
  - Kussmaul respiration [Recovered/Resolved]
  - Treatment noncompliance [Unknown]
  - Product administration error [Unknown]
  - Blood glucose increased [Recovered/Resolved]

NARRATIVE: CASE EVENT DATE: 20200113
